FAERS Safety Report 21543570 (Version 1)
Quarter: 2022Q4

REPORT INFORMATION
  Report Type: Spontaneous
  Country: None (occurrence: US)
  Receive Date: 20221102
  Receipt Date: 20221102
  Transmission Date: 20230113
  Serious: Yes (Other)
  Sender: FDA-Public Use
  Company Number: US-Breckenridge Pharmaceutical, Inc.-2134427

PATIENT
  Age: 38 Year
  Sex: Female
  Weight: 47.727 kg

DRUGS (1)
  1. CLOBAZAM [Suspect]
     Active Substance: CLOBAZAM
     Indication: Epilepsy
     Route: 048

REACTIONS (5)
  - Dysarthria [Unknown]
  - Memory impairment [Unknown]
  - Anger [Unknown]
  - Abnormal behaviour [Unknown]
  - Dyskinesia [Unknown]
